FAERS Safety Report 11520605 (Version 7)
Quarter: 2015Q4

REPORT INFORMATION
  Report Type: Spontaneous
  Country: DE (occurrence: DE)
  Receive Date: 20150918
  Receipt Date: 20151204
  Transmission Date: 20160304
  Serious: Yes (Hospitalization, Other)
  Sender: FDA-Public Use
  Company Number: DE-BIOGENIDEC-2015BI123131

PATIENT
  Age: 55 Year
  Sex: Female

DRUGS (7)
  1. AMANTADINE [Concomitant]
     Active Substance: AMANTADINE
  2. GABAPENTIN. [Concomitant]
     Active Substance: GABAPENTIN
  3. QUIETIAPIN [Concomitant]
  4. TYSABRI [Suspect]
     Active Substance: NATALIZUMAB
     Indication: MULTIPLE SCLEROSIS
     Route: 042
     Dates: start: 2007, end: 20150804
  5. CITALOPRAM [Concomitant]
     Active Substance: CITALOPRAM HYDROBROMIDE
  6. MELPERON [Concomitant]
     Active Substance: MELPERONE
  7. BETAVERT [Concomitant]

REACTIONS (2)
  - Progressive multifocal leukoencephalopathy [Not Recovered/Not Resolved]
  - Epilepsy [Unknown]
